FAERS Safety Report 23798135 (Version 2)
Quarter: 2024Q2

REPORT INFORMATION
  Report Type: Spontaneous
  Country: US (occurrence: US)
  Receive Date: 20240430
  Receipt Date: 20240506
  Transmission Date: 20240716
  Serious: No
  Sender: FDA-Public Use
  Company Number: US-PFIZER INC-202400094105

PATIENT
  Age: 16 Year
  Sex: Male
  Weight: 68.036 kg

DRUGS (2)
  1. GENOTROPIN [Suspect]
     Active Substance: SOMATROPIN
     Indication: Growth hormone deficiency
     Dosage: 2 MG, DAILY
  2. GENOTROPIN [Suspect]
     Active Substance: SOMATROPIN
     Dosage: AT NIGHT
     Route: 033
     Dates: start: 202307

REACTIONS (6)
  - Device use error [Unknown]
  - Product dose omission issue [Unknown]
  - Incorrect route of product administration [Unknown]
  - Poor quality device used [Unknown]
  - Device breakage [Unknown]
  - Device mechanical issue [Unknown]

NARRATIVE: CASE EVENT DATE: 20240417
